FAERS Safety Report 8248538 (Version 5)
Quarter: 2014Q1

REPORT INFORMATION
  Report Type: Spontaneous
  Country: BR (occurrence: BR)
  Receive Date: 20111117
  Receipt Date: 20140214
  Transmission Date: 20141002
  Serious: Yes (Hospitalization, Other)
  Sender: FDA-Public Use
  Company Number: BR-ROCHE-1011890

PATIENT
  Sex: Female
  Weight: 45 kg

DRUGS (6)
  1. RIVOTRIL [Suspect]
     Indication: NERVOUSNESS
     Route: 048
     Dates: start: 2004
  2. RIVOTRIL [Suspect]
     Indication: DEPRESSION
  3. CLONAZEPAM [Suspect]
     Indication: DEPRESSION
     Route: 065
  4. AMITRIPTYLINE [Suspect]
     Indication: DEPRESSION
     Route: 065
  5. SERTRALINE [Concomitant]
  6. CLONAZEPAM [Concomitant]

REACTIONS (16)
  - Weight decreased [Unknown]
  - Ill-defined disorder [Unknown]
  - Arthropathy [Unknown]
  - Diverticulitis [Unknown]
  - Osteoporosis [Unknown]
  - Localised infection [Recovered/Resolved]
  - Pain in extremity [Not Recovered/Not Resolved]
  - Blood cholesterol increased [Unknown]
  - Mobility decreased [Not Recovered/Not Resolved]
  - Post procedural complication [Unknown]
  - Feeling of despair [Unknown]
  - Fatigue [Unknown]
  - Drug ineffective [Unknown]
  - Depressed mood [Unknown]
  - Mobility decreased [Unknown]
  - Headache [Not Recovered/Not Resolved]
